FAERS Safety Report 4532317-4 (Version None)
Quarter: 2004Q4

REPORT INFORMATION
  Report Type: 
  Country: None (occurrence: None)
  Receive Date: 20041217
  Receipt Date: 20041206
  Transmission Date: 20050328
  Serious: Yes (Life-Threatening, Other)
  Sender: FDA-Public Use
  Company Number: 2004108107

PATIENT
  Age: 76 Year
  Sex: Female
  Weight: 68.0396 kg

DRUGS (7)
  1. DETROL LA [Suspect]
     Indication: INCONTINENCE
     Dosage: 4 MG (2 MG, DAILY INTERVAL:  EVERY DAY), ORAL
     Route: 048
     Dates: end: 20040101
  2. ESOMEPRAZOLE (ESOMEPRAZOLE) [Concomitant]
  3. TICLOPIDINE HCL [Concomitant]
  4. ANTIHYPERTENSIVES (ANTIHYPERTENSIVES) [Concomitant]
  5. MONTELUKAST SODIUM (MONTELUKAST SODIUM) [Concomitant]
  6. SERETIDE MITE (FLUTICASONE PROPIONATE, SALMETEROL XINAFOATE) [Concomitant]
  7. NORTRIPTYLINE HCL [Concomitant]

REACTIONS (7)
  - CARDIAC ARREST [None]
  - GALLBLADDER DISORDER [None]
  - IMPAIRED HEALING [None]
  - INCONTINENCE [None]
  - PROCEDURAL COMPLICATION [None]
  - STAPHYLOCOCCAL INFECTION [None]
  - WOUND DRAINAGE [None]
